FAERS Safety Report 10379891 (Version 4)
Quarter: 2014Q4

REPORT INFORMATION
  Report Type: Report from Study
  Country: BR (occurrence: BR)
  Receive Date: 20140812
  Receipt Date: 20141005
  Transmission Date: 20150528
  Serious: Yes (Hospitalization)
  Sender: FDA-Public Use
  Company Number: BR-ROCHE-1444364

PATIENT
  Age: 58 Year
  Sex: Female
  Weight: 66 kg

DRUGS (9)
  1. CELECOXIB. [Concomitant]
     Active Substance: CELECOXIB
     Indication: RHEUMATOID ARTHRITIS
     Route: 065
  2. ATENOLOL. [Concomitant]
     Active Substance: ATENOLOL
     Indication: BLOOD PRESSURE
  3. FOLIC ACID. [Concomitant]
     Active Substance: FOLIC ACID
  4. TECNOMET [Concomitant]
  5. LEVOTHYROXINE [Concomitant]
     Active Substance: LEVOTHYROXINE
     Indication: THYROID DISORDER
  6. ACTEMRA [Suspect]
     Active Substance: TOCILIZUMAB
     Dosage: TOTAL MONTHLY DOSE 2 MG
     Route: 042
     Dates: start: 20140531, end: 20140626
  7. METHOTREXATE [Concomitant]
     Active Substance: METHOTREXATE
     Indication: RHEUMATOID ARTHRITIS
     Route: 048
     Dates: start: 201312, end: 201408
  8. VIMOVO [Concomitant]
     Active Substance: ESOMEPRAZOLE MAGNESIUM\NAPROXEN
  9. ACTEMRA [Suspect]
     Active Substance: TOCILIZUMAB
     Indication: RHEUMATOID ARTHRITIS
     Route: 042
     Dates: start: 20140525

REACTIONS (6)
  - Breast pain [Unknown]
  - Blister [Unknown]
  - Herpes zoster [Recovered/Resolved]
  - Burning sensation [Unknown]
  - Erythema multiforme [Recovered/Resolved]
  - Joint swelling [Unknown]

NARRATIVE: CASE EVENT DATE: 20140531
